FAERS Safety Report 6821678-9 (Version None)
Quarter: 2010Q3

REPORT INFORMATION
  Report Type: 
  Country: None (occurrence: None)
  Receive Date: 20100707
  Receipt Date: 20090603
  Transmission Date: 20110219
  Serious: No
  Sender: FDA-Public Use
  Company Number: US-PFIZER INC-2009204957

PATIENT
  Sex: Female
  Weight: 72.6 kg

DRUGS (3)
  1. ZOLOFT [Suspect]
     Indication: DEPRESSION
     Dosage: 150 MG, 1X/DAY
     Route: 048
     Dates: start: 19950301
  2. SERTRALINE HCL [Suspect]
     Indication: DEPRESSION
     Dosage: 250 MG, 1X/DAY
     Dates: start: 20060901, end: 20061001
  3. MULTI-VITAMINS [Concomitant]
     Dosage: UNK

REACTIONS (2)
  - ANXIETY [None]
  - DRUG INEFFECTIVE [None]
